FAERS Safety Report 5078718-X (Version None)
Quarter: 2006Q3

REPORT INFORMATION
  Report Type: 
  Country: None (occurrence: None)
  Receive Date: 20060809
  Receipt Date: 20060809
  Transmission Date: 20061208
  Serious: No
  Sender: FDA-Public Use
  Company Number: None

PATIENT

DRUGS (1)
  1. LOVASTATIN [Suspect]
     Dosage: 40 Q [CHRONIC]

REACTIONS (1)
  - MYOPATHY [None]
